FAERS Safety Report 25471758 (Version 1)
Quarter: 2025Q2

REPORT INFORMATION
  Report Type: Spontaneous
  Country: US (occurrence: US)
  Receive Date: 20250624
  Receipt Date: 20250624
  Transmission Date: 20250716
  Serious: Yes (Life-Threatening, Other)
  Sender: NOVO NORDISK
  Company Number: US-NOVOPROD-1460796

PATIENT
  Age: 70 Year
  Sex: Female

DRUGS (3)
  1. NOVOLOG [Suspect]
     Active Substance: INSULIN ASPART
     Indication: Type 2 diabetes mellitus
     Route: 058
     Dates: start: 2010
  2. OZEMPIC [Suspect]
     Active Substance: SEMAGLUTIDE
     Indication: Type 2 diabetes mellitus
  3. RESTASIS [Suspect]
     Active Substance: CYCLOSPORINE
     Indication: Dry eye
     Dates: start: 2025

REACTIONS (12)
  - Breast cancer [Unknown]
  - Gastrointestinal surgery [Unknown]
  - Visual impairment [Unknown]
  - Cataract operation [Not Recovered/Not Resolved]
  - Cataract operation complication [Unknown]
  - Post procedural complication [Not Recovered/Not Resolved]
  - Adverse drug reaction [Unknown]
  - Meibomian gland dysfunction [Not Recovered/Not Resolved]
  - Eye swelling [Unknown]
  - Erythema of eyelid [Unknown]
  - Eczema [Not Recovered/Not Resolved]
  - Drug hypersensitivity [Unknown]

NARRATIVE: CASE EVENT DATE: 20240101
